FAERS Safety Report 7554200-2 (Version None)
Quarter: 2011Q2

REPORT INFORMATION
  Report Type: 
  Country: None (occurrence: None)
  Receive Date: 20110610
  Receipt Date: 20110527
  Transmission Date: 20111010
  Serious: Yes (Death, Hospitalization)
  Sender: FDA-Public Use
  Company Number: 2011MA005736

PATIENT
  Age: 64 Year
  Sex: Male

DRUGS (11)
  1. THEOPHYLLINE [Concomitant]
  2. ASPIRIN [Concomitant]
  3. LEVEMIR [Concomitant]
  4. BDP [Concomitant]
  5. ENALAPRIL MALEATE [Concomitant]
  6. ATORVASTATIN [Concomitant]
  7. INSULIN ASPART [Concomitant]
  8. SFC [Concomitant]
  9. BETAMETHASONE DIPROPIONATE [Suspect]
     Indication: ASTHMA
     Dosage: 16 MG;QD;IV
     Route: 042
     Dates: start: 20080501
  10. SODIUM CHLORIDE [Concomitant]
  11. TORSEMIDE [Concomitant]

REACTIONS (19)
  - FUNGAL SEPSIS [None]
  - MUSCLE ATROPHY [None]
  - MUSCULAR WEAKNESS [None]
  - DECREASED APPETITE [None]
  - INFLUENZA [None]
  - DRY MOUTH [None]
  - THROMBOTIC MICROANGIOPATHY [None]
  - PNEUMONIA CRYPTOCOCCAL [None]
  - ACTIVITIES OF DAILY LIVING IMPAIRED [None]
  - GASTROINTESTINAL HAEMORRHAGE [None]
  - ASTHMA [None]
  - DISSEMINATED CRYPTOCOCCOSIS [None]
  - LUNG NEOPLASM [None]
  - CENTRAL OBESITY [None]
  - NASOPHARYNGITIS [None]
  - MUSCLE FATIGUE [None]
  - VENTRICULAR TACHYCARDIA [None]
  - BODY TEMPERATURE DECREASED [None]
  - DISSEMINATED INTRAVASCULAR COAGULATION [None]
